FAERS Safety Report 6493143-2 (Version None)
Quarter: 2009Q4

REPORT INFORMATION
  Report Type: 
  Country: None (occurrence: None)
  Receive Date: 20091214
  Receipt Date: 20091112
  Transmission Date: 20100525
  Serious: No
  Sender: FDA-Public Use
  Company Number: US-BAYER-200939608NA

PATIENT
  Sex: Female
  Weight: 100 kg

DRUGS (1)
  1. YAZ [Suspect]
     Indication: UTERINE LEIOMYOMA
     Route: 048
     Dates: start: 20090701, end: 20090901

REACTIONS (3)
  - BLOOD PRESSURE INCREASED [None]
  - BREAST PAIN [None]
  - WEIGHT FLUCTUATION [None]
